FAERS Safety Report 9443066 (Version 1)
Quarter: 2013Q3

REPORT INFORMATION
  Report Type: Spontaneous
  Country: FR (occurrence: FR)
  Receive Date: 20130806
  Receipt Date: 20130806
  Transmission Date: 20140515
  Serious: Yes (Hospitalization)
  Sender: FDA-Public Use
  Company Number: FR-WATSON-2013-13743

PATIENT
  Age: 75 Year
  Sex: Male

DRUGS (9)
  1. PREDNISONE (UNKNOWN) [Suspect]
     Indication: PROSTATE CANCER STAGE III
     Dosage: 2 DF, DAILY
     Route: 048
  2. FENTANYL (UNKNOWN) [Suspect]
     Indication: PAIN
     Dosage: 50 MCG/HR, UNKNOWN
     Route: 062
     Dates: start: 201106
  3. HYDROXYZINE PAMOATE (WATSON LABORATORIES) [Suspect]
     Indication: ANXIETY
     Dosage: 25 MG, UNKNOWN
     Route: 048
     Dates: start: 201106
  4. BISOPROLOL (UNKNOWN) [Suspect]
     Indication: MYOCARDIAL ISCHAEMIA
     Dosage: 7.5 MG, UNKNOWN
     Route: 048
     Dates: start: 201106
  5. POTASSIUM CHLORIDE EXTENDED-RELEASE (WATSON LABORATORIES) [Suspect]
     Indication: HYPOKALAEMIA
     Dosage: 1 DF, DAILY
     Route: 048
     Dates: start: 201106
  6. PARACETAMOL (UNKNOWN) [Suspect]
     Indication: PAIN
     Dosage: 1 DF, DAILY
     Route: 048
     Dates: start: 201106
  7. PERINDOPRIL (UNKNOWN) [Suspect]
     Indication: PRODUCT USED FOR UNKNOWN INDICATION
     Dosage: 10 MG, UNKNOWN
     Route: 048
  8. ZYTIGA [Suspect]
     Indication: PROSTATE CANCER STAGE III
     Dosage: 250 MG, UNKNOWN
     Route: 048
     Dates: start: 201106
  9. KARDEGIC [Suspect]
     Indication: MYOCARDIAL ISCHAEMIA
     Dosage: 75 MG, UNKNOWN
     Route: 048
     Dates: start: 201106

REACTIONS (3)
  - Hallucination [Recovered/Resolved]
  - Abnormal behaviour [Recovered/Resolved]
  - Agitation [Recovered/Resolved]
